FAERS Safety Report 23063183 (Version 1)
Quarter: 2023Q4

REPORT INFORMATION
  Report Type: Spontaneous
  Country: US (occurrence: None)
  Receive Date: 20231012
  Receipt Date: 20231012
  Transmission Date: 20240109
  Serious: Yes (Other)
  Sender: FDA-Public Use
  Company Number: None

PATIENT
  Age: 73 Year
  Sex: Female
  Weight: 77.85 kg

DRUGS (12)
  1. TYRVAYA [Suspect]
     Active Substance: VARENICLINE TARTRATE
     Indication: Dry eye
     Dosage: FREQUENCY : TWICE A DAY;?OTHER ROUTE : NASAL SPRAYS;?
     Route: 045
     Dates: start: 20230822, end: 20231010
  2. DEVICE [Concomitant]
     Active Substance: DEVICE
  3. SYNTHROID [Concomitant]
     Active Substance: LEVOTHYROXINE SODIUM
  4. OXYBUTYNIN [Concomitant]
     Active Substance: OXYBUTYNIN
  5. POSTMENOPAUSAL HORMONE THERAPY (PROGESTERONE + TESTOSTERONE CREAM) [Concomitant]
  6. GABAPENTIN [Concomitant]
     Active Substance: GABAPENTIN
  7. ZINC [Concomitant]
     Active Substance: ZINC
  8. CALCIUM [Concomitant]
     Active Substance: CALCIUM
  9. OMEGA 3 [Concomitant]
     Active Substance: CAPSAICIN
  10. VITAMIN D3 [Concomitant]
     Active Substance: CHOLECALCIFEROL
  11. BIOTIN/COLLAGEN [Concomitant]
  12. B VITAMIN SUPPLEMENT [Concomitant]

REACTIONS (7)
  - Sinusitis [None]
  - Musculoskeletal chest pain [None]
  - Cough [None]
  - Dyspnoea [None]
  - Epistaxis [None]
  - Therapy cessation [None]
  - Dry eye [None]

NARRATIVE: CASE EVENT DATE: 20231010
